FAERS Safety Report 9308233 (Version 1)
Quarter: 2013Q2

REPORT INFORMATION
  Report Type: Spontaneous
  Country: US (occurrence: US)
  Receive Date: 20130524
  Receipt Date: 20130524
  Transmission Date: 20140414
  Serious: Yes (Other)
  Sender: FDA-Public Use
  Company Number: US-ASTRAZENECA-2013SE34507

PATIENT
  Age: 67 Year
  Sex: Male
  Weight: 88.5 kg

DRUGS (15)
  1. SYMBICORT [Suspect]
     Indication: CHRONIC OBSTRUCTIVE PULMONARY DISEASE
     Dosage: 160 MCG 2 PUFFS BID
     Route: 055
  2. OMEPRAZOLE [Suspect]
     Indication: ABDOMINAL DISCOMFORT
     Route: 048
     Dates: start: 2009
  3. LISINOPRIL [Suspect]
     Indication: HYPERTENSION
     Route: 048
     Dates: start: 2009
  4. MORPHINE [Suspect]
     Route: 065
  5. OXYGEN CONTINUOUS [Concomitant]
     Indication: SLEEP APNOEA SYNDROME
     Dosage: 2.75 HS
     Route: 055
     Dates: start: 2009
  6. TEMAZEPAM [Concomitant]
     Indication: SLEEP DISORDER
     Route: 048
     Dates: start: 2009, end: 2012
  7. TEMAZEPAM [Concomitant]
     Indication: SLEEP DISORDER
     Route: 048
     Dates: start: 2012
  8. RAPID SLEEP MELATONIN [Concomitant]
     Indication: SLEEP DISORDER
     Route: 048
     Dates: start: 201304
  9. VENTOLIN HFA [Concomitant]
     Indication: RESPIRATORY THERAPY
     Dosage: PRN
     Route: 055
  10. BAYER ASPIRIN [Concomitant]
     Route: 048
     Dates: end: 201303
  11. BAYER ASPIRIN [Concomitant]
  12. SERTRALINE HCL [Concomitant]
     Indication: DEPRESSION
     Route: 048
     Dates: start: 2010
  13. PRAVASTATIN [Concomitant]
     Indication: BLOOD CHOLESTEROL ABNORMAL
     Route: 048
     Dates: start: 2008
  14. AMLODIPINE [Concomitant]
     Indication: HYPERTENSION
     Route: 048
     Dates: start: 2009
  15. UNKNOWN [Concomitant]
     Indication: BLOOD PRESSURE ABNORMAL
     Dates: start: 2009

REACTIONS (10)
  - Cerebrovascular accident [Recovering/Resolving]
  - Umbilical hernia [Unknown]
  - Memory impairment [Unknown]
  - Asthenia [Unknown]
  - Visual impairment [Unknown]
  - Vision blurred [Unknown]
  - Insomnia [Unknown]
  - Depression [Unknown]
  - Drug dose omission [Unknown]
  - Drug hypersensitivity [Unknown]
